APPROVED DRUG PRODUCT: BIMATOPROST
Active Ingredient: BIMATOPROST
Strength: 0.03%
Dosage Form/Route: SOLUTION/DROPS;OPHTHALMIC
Application: A210126 | Product #001 | TE Code: AT
Applicant: GLAND PHARMA LTD
Approved: Mar 22, 2019 | RLD: No | RS: No | Type: RX